FAERS Safety Report 26125567 (Version 1)
Quarter: 2025Q4

REPORT INFORMATION
  Report Type: Spontaneous
  Country: AU (occurrence: AU)
  Receive Date: 20251205
  Receipt Date: 20251205
  Transmission Date: 20260117
  Serious: Yes (Other)
  Sender: JAZZ
  Company Number: AU-PHARMAMAR-2025PM000677

PATIENT
  Sex: Male

DRUGS (1)
  1. ZEPZELCA [Suspect]
     Active Substance: LURBINECTEDIN
     Indication: Small cell lung cancer extensive stage
     Dosage: 6.4 MILLIGRAM, Q3W
     Dates: start: 20251009

REACTIONS (3)
  - Disease progression [Unknown]
  - Off label use [Unknown]
  - Product use issue [Unknown]
